FAERS Safety Report 10152687 (Version 1)
Quarter: 2014Q2

REPORT INFORMATION
  Report Type: Spontaneous
  Country: US (occurrence: None)
  Receive Date: 20140502
  Receipt Date: 20140502
  Transmission Date: 20141212
  Serious: Yes (Other)
  Sender: FDA-Public Use
  Company Number: None

PATIENT
  Sex: Female

DRUGS (21)
  1. SOVALDI [Suspect]
     Indication: HEPATITIS C
     Route: 048
  2. PEGASYS [Concomitant]
  3. QUETIAPINE [Concomitant]
  4. FERROUS SULF [Concomitant]
  5. SYMBIDORT [Concomitant]
  6. COMBIVENT [Concomitant]
  7. MONTELUKAST [Concomitant]
  8. ALLERGY [Concomitant]
  9. FISH OIL [Concomitant]
  10. CITALOPRAM [Concomitant]
  11. ALBUTEROL [Concomitant]
  12. WOMENS ONE [Concomitant]
  13. CALCIUM [Concomitant]
  14. VITAMIN D3 [Concomitant]
  15. NEUPOGEN [Concomitant]
  16. PROCRIT [Concomitant]
  17. FLUTICASONE [Concomitant]
  18. SOVALDI [Concomitant]
  19. AMOX/K CLAV [Concomitant]
  20. RIBAVIRIN [Concomitant]
  21. B12-ACTIVE [Concomitant]

REACTIONS (1)
  - Red blood cell count decreased [None]
